FAERS Safety Report 7899944-8 (Version None)
Quarter: 2011Q4

REPORT INFORMATION
  Report Type: 
  Country: None (occurrence: None)
  Receive Date: 20111107
  Receipt Date: 20111018
  Transmission Date: 20120403
  Serious: Yes (Other)
  Sender: FDA-Public Use
  Company Number: US-AMGEN-USASP2011045282

PATIENT
  Age: 62 Year
  Sex: Female

DRUGS (12)
  1. METHOTREXATE [Concomitant]
     Dosage: UNK
  2. BESIVANCE                          /06324101/ [Concomitant]
     Dosage: UNK
  3. ENBREL [Suspect]
     Indication: RHEUMATOID ARTHRITIS
     Dosage: 50 MG, QWK
     Dates: start: 20110815, end: 20111008
  4. PRAVASTATIN [Concomitant]
     Dosage: UNK
  5. CYMBALTA [Concomitant]
     Dosage: UNK
  6. SERTRALINE HYDROCHLORIDE [Concomitant]
     Dosage: UNK
  7. MELOXICAM [Concomitant]
     Dosage: UNK
  8. NEXIUM [Concomitant]
     Dosage: UNK
  9. TEMAZEPAM [Concomitant]
     Dosage: UNK MG, UNK
  10. FOLIC ACID [Concomitant]
     Dosage: UNK
  11. PERCOCET [Concomitant]
     Dosage: UNK
  12. ENBREL [Suspect]
     Dosage: 50 MG, QWK
     Dates: start: 20110101

REACTIONS (7)
  - INJECTION SITE WARMTH [None]
  - INJECTION SITE RECALL REACTION [None]
  - INJECTION SITE PRURITUS [None]
  - HYPERSENSITIVITY [None]
  - INJECTION SITE ERYTHEMA [None]
  - INJECTION SITE PAIN [None]
  - INJECTION SITE REACTION [None]
